FAERS Safety Report 7263540-6 (Version None)
Quarter: 2011Q1

REPORT INFORMATION
  Report Type: 
  Country: None (occurrence: None)
  Receive Date: 20110130
  Receipt Date: 20101025
  Transmission Date: 20110831
  Serious: Yes (Other)
  Sender: FDA-Public Use
  Company Number: US-ABBOTT-10P-163-0681964-00

PATIENT
  Sex: Female
  Weight: 59.928 kg

DRUGS (7)
  1. LORTAB [Concomitant]
     Indication: PAIN
  2. MYNORIA [Concomitant]
     Indication: CONTRACEPTION
  3. SOMA [Concomitant]
     Indication: MUSCLE RELAXANT THERAPY
  4. ALPRAZOLAM [Concomitant]
     Indication: ANXIETY
  5. HUMIRA [Suspect]
     Indication: RHEUMATOID ARTHRITIS
     Dates: start: 20040101
  6. METHOTREXATE [Concomitant]
     Indication: RHEUMATOID ARTHRITIS
     Dates: start: 20040101
  7. LYRICA [Concomitant]
     Indication: FIBROMYALGIA

REACTIONS (1)
  - CERVICAL VERTEBRAL FRACTURE [None]
